FAERS Safety Report 8877613 (Version 1)
Quarter: 2012Q4

REPORT INFORMATION
  Report Type: Spontaneous
  Country: US (occurrence: None)
  Receive Date: 20121031
  Receipt Date: 20121031
  Transmission Date: 20130627
  Serious: Yes (Hospitalization)
  Sender: FDA-Public Use
  Company Number: None

PATIENT
  Age: 53 Year
  Sex: Female
  Weight: 72.58 kg

DRUGS (1)
  1. HOMEOPATHICS [Suspect]
     Indication: WEIGHT LOSS
     Dosage: 10 drops
     Dates: start: 20120923, end: 20121007

REACTIONS (2)
  - Weight increased [None]
  - Pancreatitis [None]
